FAERS Safety Report 20848340 (Version 2)
Quarter: 2022Q2

REPORT INFORMATION
  Report Type: Spontaneous
  Country: JP (occurrence: JP)
  Receive Date: 20220519
  Receipt Date: 20220609
  Transmission Date: 20220720
  Serious: Yes (Other)
  Sender: FDA-Public Use
  Company Number: JP-MYLANLABS-2022M1036472

PATIENT
  Age: 85 Year
  Sex: Male

DRUGS (5)
  1. CARBOPLATIN [Suspect]
     Active Substance: CARBOPLATIN
     Indication: Head and neck cancer
     Dosage: 119.8 MILLIGRAM, QD, AUC2
     Route: 041
     Dates: start: 20220224, end: 20220224
  2. CARBOPLATIN [Suspect]
     Active Substance: CARBOPLATIN
     Indication: Neoplasm
     Dosage: 119.8 MILLIGRAM, QD, AUC2
     Route: 041
     Dates: start: 20220310, end: 20220310
  3. CARBOPLATIN [Suspect]
     Active Substance: CARBOPLATIN
     Dosage: 119.8 MILLIGRAM, QD, AUC2
     Route: 041
     Dates: start: 20220412, end: 20220412
  4. ERBITUX [Suspect]
     Active Substance: CETUXIMAB
     Indication: Product used for unknown indication
     Route: 065
  5. PACLITAXEL [Suspect]
     Active Substance: PACLITAXEL
     Indication: Product used for unknown indication
     Route: 065

REACTIONS (2)
  - Colitis ischaemic [Recovered/Resolved]
  - Gastrointestinal necrosis [Recovered/Resolved]

NARRATIVE: CASE EVENT DATE: 20220416
